FAERS Safety Report 24583628 (Version 1)
Quarter: 2024Q4

REPORT INFORMATION
  Report Type: Spontaneous
  Country: CN (occurrence: CN)
  Receive Date: 20241106
  Receipt Date: 20241106
  Transmission Date: 20250115
  Serious: Yes (Death, Hospitalization)
  Sender: STRIDES
  Company Number: CN-STRIDES ARCOLAB LIMITED-2024SP014211

PATIENT
  Age: 65 Year
  Sex: Female

DRUGS (6)
  1. ETOPOSIDE [Suspect]
     Active Substance: ETOPOSIDE
     Indication: Small cell lung cancer extensive stage
     Dosage: 70 MILLIGRAM/SQ. METER, CYCLICAL (FROM DAYS 1-5 ADMINISTERED IN 6?WEEKS CYCLES)
     Route: 065
     Dates: start: 2022
  2. CARBOPLATIN [Suspect]
     Active Substance: CARBOPLATIN
     Indication: Small cell lung cancer extensive stage
     Dosage: UNK, CYCLICAL (AUC 5 ON DAY 1 ADMINISTERED IN 6?WEEKS CYCLES)
     Route: 065
     Dates: start: 2022
  3. SERPLULIMAB [Suspect]
     Active Substance: SERPLULIMAB
     Indication: Small cell lung cancer extensive stage
     Dosage: 200 MILLIGRAM, CYCLICAL (ON DAY ONE ADMINISTERED IN 6?WEEKS CYCLES)
     Route: 065
     Dates: start: 2022
  4. OSIMERTINIB [Suspect]
     Active Substance: OSIMERTINIB
     Indication: Lung adenocarcinoma stage IV
     Dosage: 80 MILLIGRAM, QD
     Route: 048
     Dates: end: 2022
  5. CISPLATIN [Suspect]
     Active Substance: CISPLATIN
     Indication: Lung adenocarcinoma stage IV
     Dosage: 120 MILLIGRAM, CYCLICAL (EVERY 10 DAYS FOR FOUR CYCLES; HYPERTHERMIC PERFUSION THERAPY)
     Route: 065
     Dates: end: 2022
  6. CATEQUENTINIB [Suspect]
     Active Substance: CATEQUENTINIB
     Indication: Lung adenocarcinoma stage IV
     Dosage: 12 MILLIGRAM, CYCLICAL (PER DAY) (FOR A CYCLE OF 14 CONSECUTIVE DAYS FOLLOWED BY A 7 DAY DISCONTINUA
     Route: 048
     Dates: start: 2022, end: 2022

REACTIONS (4)
  - Death [Fatal]
  - Drug ineffective [Unknown]
  - Metastases to central nervous system [Unknown]
  - Therapy partial responder [Unknown]

NARRATIVE: CASE EVENT DATE: 20220101
